FAERS Safety Report 21326045 (Version 1)
Quarter: 2022Q3

REPORT INFORMATION
  Report Type: Report from Study
  Country: US (occurrence: US)
  Receive Date: 20220913
  Receipt Date: 20220913
  Transmission Date: 20221027
  Serious: Yes (Other)
  Sender: FDA-Public Use
  Company Number: US-AMGEN-USASL2022156824

PATIENT
  Age: 24 Year
  Sex: Female

DRUGS (1)
  1. OTEZLA [Suspect]
     Active Substance: APREMILAST
     Indication: Product used for unknown indication
     Dosage: UNK, STARTER SAMPLE
     Route: 065
     Dates: start: 202209

REACTIONS (2)
  - Haematemesis [Unknown]
  - Dizziness [Unknown]

NARRATIVE: CASE EVENT DATE: 20220909
